FAERS Safety Report 9838232 (Version 1)
Quarter: 2013Q4

REPORT INFORMATION
  Report Type: Spontaneous
  Country: US (occurrence: None)
  Receive Date: 20131205
  Receipt Date: 20131205
  Transmission Date: 20140711
  Serious: Yes (Other)
  Sender: FDA-Public Use
  Company Number: 163-POMAL-13081679

PATIENT
  Age: 72 Year
  Sex: Male
  Weight: 61.24 kg

DRUGS (14)
  1. POMALYST (POMALIDOMIDE) (4 MILLIGRAM, CAPSULES) [Suspect]
     Indication: PLASMA CELL MYELOMA
     Dosage: 4 MG , 1 IN 1 D, PO
     Route: 048
     Dates: start: 20130622
  2. FLUCONAZOLE (FLUCONAZOLE) [Concomitant]
  3. FUROSEMIDE (FUROSEMIDE) [Concomitant]
  4. FLUCONAZOLE (FLUCONAZOLE) [Concomitant]
  5. LEXAPRO (ESCITALOPRAM OXALATE) [Concomitant]
  6. PRILOSEC (OMEPRAZOLE) [Concomitant]
  7. PROBIOTIC (BIFIDOBACTERIUM LACTIS) [Concomitant]
  8. COREG (CARVEDILOL) [Concomitant]
  9. DEXAMETHASONE (DEXAMETHASONE) [Concomitant]
  10. ACYCLOVIR (ACICLOVIR) (ACICLOVIR) [Concomitant]
  11. AVODART) DUTASTERIDE) [Concomitant]
  12. BACTRIM DS (BACTRIM) [Concomitant]
  13. FENTANYL (FENTANYL) [Concomitant]
  14. OXYCODONE HCL (OXYCODONE HYDROCHLORIDE) [Concomitant]

REACTIONS (1)
  - Varicose vein [None]
